FAERS Safety Report 9859253 (Version 2)
Quarter: 2014Q1

REPORT INFORMATION
  Report Type: Spontaneous
  Country: US (occurrence: US)
  Receive Date: 20140131
  Receipt Date: 20140131
  Transmission Date: 20141002
  Serious: No
  Sender: FDA-Public Use
  Company Number: US-GILEAD-2013-0068699

PATIENT
  Age: 18 Year
  Sex: Male
  Weight: 73.48 kg

DRUGS (10)
  1. CAYSTON [Suspect]
     Indication: CYSTIC FIBROSIS
     Dosage: UNK
     Route: 055
  2. CAYSTON [Suspect]
     Dosage: UNK
     Route: 055
  3. XOPENEX HFA [Concomitant]
     Indication: CYSTIC FIBROSIS
  4. XOPENEX [Concomitant]
     Indication: CYSTIC FIBROSIS
  5. PROTONIX [Concomitant]
     Indication: CYSTIC FIBROSIS
  6. SINGULAR [Concomitant]
     Indication: CYSTIC FIBROSIS
  7. CREON [Concomitant]
     Indication: CYSTIC FIBROSIS
  8. PULMOZYME [Concomitant]
     Indication: CYSTIC FIBROSIS
  9. HYPERTONIC SALINE SOLUTION [Concomitant]
     Indication: CYSTIC FIBROSIS
  10. TOBI                               /00304201/ [Concomitant]
     Indication: CYSTIC FIBROSIS

REACTIONS (1)
  - Urticaria [Recovered/Resolved]
